FAERS Safety Report 23026659 (Version 1)
Quarter: 2023Q4

REPORT INFORMATION
  Report Type: Spontaneous
  Country: US (occurrence: US)
  Receive Date: 20231004
  Receipt Date: 20231004
  Transmission Date: 20240110
  Serious: Yes (Other)
  Sender: FDA-Public Use
  Company Number: US-BAYER-2023A135613

PATIENT
  Age: 83 Year
  Sex: Female

DRUGS (2)
  1. ALKA-SELTZER PLUS DAY COLD AND FLU [Suspect]
     Active Substance: ACETAMINOPHEN\DEXTROMETHORPHAN HYDROBROMIDE\PHENYLEPHRINE HYDROCHLORIDE
     Indication: Hypersensitivity
     Dosage: TWO IN THE MORNING, TWO AT NIGHT
     Route: 048
  2. ALKA-SELTZER PLUS DAY COLD AND FLU [Suspect]
     Active Substance: ACETAMINOPHEN\DEXTROMETHORPHAN HYDROBROMIDE\PHENYLEPHRINE HYDROCHLORIDE
     Indication: Nasopharyngitis

REACTIONS (1)
  - Foreign body in throat [Unknown]
